FAERS Safety Report 18375981 (Version 1)
Quarter: 2020Q4

REPORT INFORMATION
  Report Type: Report from Study
  Country: PK (occurrence: PK)
  Receive Date: 20201013
  Receipt Date: 20201013
  Transmission Date: 20210114
  Serious: Yes (Death, Other)
  Sender: FDA-Public Use
  Company Number: PK-ACCORD-204881

PATIENT

DRUGS (2)
  1. VINORELBINE [Suspect]
     Active Substance: VINORELBINE TARTRATE
     Indication: HODGKIN^S DISEASE
     Dosage: ON DAYS 1 AND 8
  2. GEMCITABINE/GEMCITABINE HYDROCHLORIDE [Suspect]
     Active Substance: GEMCITABINE\GEMCITABINE HYDROCHLORIDE
     Indication: HODGKIN^S DISEASE
     Dosage: ON DAYS 1 AND 8

REACTIONS (1)
  - Haemophagocytic lymphohistiocytosis [Fatal]
